FAERS Safety Report 4738274-X (Version None)
Quarter: 2005Q3

REPORT INFORMATION
  Report Type: 
  Country: None (occurrence: None)
  Receive Date: 20050803
  Receipt Date: 20050722
  Transmission Date: 20060218
  Serious: Yes (Life-Threatening, Hospitalization)
  Sender: FDA-Public Use
  Company Number: HQWYE422426JUL04

PATIENT
  Age: 31 Year
  Sex: Male

DRUGS (15)
  1. CYCLOSPORINE [Suspect]
     Indication: PROPHYLAXIS AGAINST TRANSPLANT REJECTION
     Dates: end: 20040624
  2. MYCOPHENOLATE MOFETIL        (MYCOPHENOLATE MOFETIL) [Concomitant]
  3. PREDNISONE [Concomitant]
  4. FUROSEMIDE [Concomitant]
  5. ERYTHROPOIETIN (ERYTHROPOIETIN) [Concomitant]
  6. ACETYLSALICYLIC ACID SRT [Concomitant]
  7. PIRACETAM (PIRACETAM) [Concomitant]
  8. KALIUM CHLORATUM SPOFA       (POTASSIUM CHLORIDE) [Concomitant]
  9. CLONIDINE HCL [Concomitant]
  10. METOPROLOL TARTRATE [Concomitant]
  11. DIHYDRALAZINE SULFATE           (DIHYDRALAZINE SULFATE) [Concomitant]
  12. PRAZOSIN HCL [Concomitant]
  13. DOXAZOSIN           (DOXAZOSIN) [Concomitant]
  14. FELODIPINE [Concomitant]
  15. RANITIDINE [Concomitant]

REACTIONS (17)
  - BLOOD CREATININE INCREASED [None]
  - BLOOD POTASSIUM INCREASED [None]
  - BLOOD UREA INCREASED [None]
  - CONDITION AGGRAVATED [None]
  - DIZZINESS [None]
  - EPISTAXIS [None]
  - HAEMODIALYSIS [None]
  - HEADACHE [None]
  - LABORATORY TEST ABNORMAL [None]
  - MALIGNANT HYPERTENSION [None]
  - OEDEMA PERIPHERAL [None]
  - RED BLOOD CELL COUNT DECREASED [None]
  - RENAL DISORDER [None]
  - TACHYCARDIA [None]
  - TRANSPLANT REJECTION [None]
  - VISUAL DISTURBANCE [None]
  - WHITE BLOOD CELL COUNT INCREASED [None]
